FAERS Safety Report 5315279-1 (Version None)
Quarter: 2007Q2

REPORT INFORMATION
  Report Type: 
  Country: None (occurrence: None)
  Receive Date: 20070502
  Receipt Date: 20070420
  Transmission Date: 20071010
  Serious: Yes (Other)
  Sender: FDA-Public Use
  Company Number: JP-PFIZER INC-2007032597

PATIENT

DRUGS (2)
  1. DALACIN S [Suspect]
     Route: 042
  2. DRUG, UNSPECIFIED [Concomitant]

REACTIONS (1)
  - INTERSTITIAL LUNG DISEASE [None]
